FAERS Safety Report 24045080 (Version 1)
Quarter: 2024Q3

REPORT INFORMATION
  Report Type: Spontaneous
  Country: DE (occurrence: DE)
  Receive Date: 20240703
  Receipt Date: 20240703
  Transmission Date: 20241017
  Serious: Yes (Other)
  Sender: MYLAN
  Company Number: DE-MYLANLABS-2024M1060908

PATIENT
  Sex: Female

DRUGS (1)
  1. GLATIRAMER ACETATE [Suspect]
     Active Substance: GLATIRAMER ACETATE
     Indication: Product used for unknown indication
     Dosage: UNK (40 MG/ ML)
     Route: 065
     Dates: start: 20240201

REACTIONS (8)
  - Multiple sclerosis relapse [Unknown]
  - Somatic symptom disorder [Unknown]
  - Abdominal wall mass [Unknown]
  - Dizziness [Unknown]
  - Pain [Unknown]
  - Nausea [Unknown]
  - Migraine [Unknown]
  - Drug ineffective [Unknown]
